FAERS Safety Report 20106210 (Version 1)
Quarter: 2021Q4

REPORT INFORMATION
  Report Type: Spontaneous
  Country: FR (occurrence: FR)
  Receive Date: 20211124
  Receipt Date: 20211124
  Transmission Date: 20220304
  Serious: Yes (Hospitalization, Other)
  Sender: FDA-Public Use
  Company Number: FR-ABBVIE-21K-056-4171389-00

PATIENT
  Age: 62 Year
  Sex: Female

DRUGS (2)
  1. VALPROIC ACID [Suspect]
     Active Substance: VALPROIC ACID
     Indication: Poisoning deliberate
     Route: 048
     Dates: start: 20200301, end: 20200301
  2. LORMETAZEPAM [Suspect]
     Active Substance: LORMETAZEPAM
     Indication: Poisoning deliberate
     Route: 048
     Dates: start: 20200301, end: 20200301

REACTIONS (4)
  - Hyperlactacidaemia [Recovered/Resolved]
  - Poisoning deliberate [Recovered/Resolved]
  - Overdose [Unknown]
  - Somnolence [Recovered/Resolved]

NARRATIVE: CASE EVENT DATE: 20200301
